FAERS Safety Report 8379704-4 (Version None)
Quarter: 2012Q2

REPORT INFORMATION
  Report Type: 
  Country: None (occurrence: None)
  Receive Date: 20120523
  Receipt Date: 20120516
  Transmission Date: 20120825
  Serious: Yes (Other)
  Sender: FDA-Public Use
  Company Number: JP-SANOFI-AVENTIS-2012SA035580

PATIENT
  Age: 13 Year
  Sex: Male

DRUGS (2)
  1. CLAFORAN [Suspect]
     Route: 042
  2. ANTIBIOTICS [Suspect]
     Route: 048

REACTIONS (8)
  - HEPATIC FAILURE [None]
  - GAMMA-GLUTAMYLTRANSFERASE INCREASED [None]
  - BLOOD CHOLESTEROL INCREASED [None]
  - ASPARTATE AMINOTRANSFERASE INCREASED [None]
  - CARNITINE DECREASED [None]
  - BLOOD BILIRUBIN INCREASED [None]
  - ALANINE AMINOTRANSFERASE INCREASED [None]
  - HYPOGLYCAEMIA [None]
